FAERS Safety Report 10359296 (Version 1)
Quarter: 2014Q3

REPORT INFORMATION
  Report Type: Spontaneous
  Country: US (occurrence: None)
  Receive Date: 20140731
  Receipt Date: 20140731
  Transmission Date: 20150326
  Serious: No
  Sender: FDA-Public Use
  Company Number: None

PATIENT
  Age: 63 Year
  Sex: Male

DRUGS (1)
  1. METOPROLOL TARTATE [Suspect]
     Active Substance: METOPROLOL TARTRATE
     Dosage: ONE TABLET, BID, ORAL
     Route: 048
     Dates: start: 20140621, end: 20140721

REACTIONS (3)
  - No therapeutic response [None]
  - Product substitution issue [None]
  - Product quality issue [None]

NARRATIVE: CASE EVENT DATE: 20140621
